FAERS Safety Report 9129862 (Version 1)
Quarter: 2013Q1

REPORT INFORMATION
  Report Type: Other
  Country: US (occurrence: US)
  Receive Date: 20130125
  Receipt Date: 20130125
  Transmission Date: 20140127
  Serious: Yes (Death)
  Sender: FDA-Public Use
  Company Number: US-FRI-1000042000

PATIENT
  Age: 47 Year
  Sex: Female

DRUGS (9)
  1. DILTIAZEM [Suspect]
  2. CITALOPRAM [Suspect]
  3. IRON [Suspect]
  4. ACETAMINOPHEN/ OXYCODONE [Suspect]
  5. GABAPENTIN [Suspect]
  6. LISINOPRIL [Suspect]
  7. MODAFINIL [Suspect]
  8. TRAZODONE [Suspect]
  9. ETHANOL [Suspect]

REACTIONS (1)
  - Adverse drug reaction [Fatal]
